FAERS Safety Report 8538230-X (Version None)
Quarter: 2012Q3

REPORT INFORMATION
  Report Type: 
  Country: None (occurrence: None)
  Receive Date: 20120726
  Receipt Date: 20120716
  Transmission Date: 20120928
  Serious: Yes (Hospitalization)
  Sender: FDA-Public Use
  Company Number: US-BIOGENIDEC-2012BI025650

PATIENT
  Age: 43 Year
  Sex: Male

DRUGS (1)
  1. AVONEX [Suspect]
     Indication: MULTIPLE SCLEROSIS
     Route: 030
     Dates: start: 20111020

REACTIONS (7)
  - APPENDICITIS [None]
  - ABDOMINAL DISTENSION [None]
  - GASTROINTESTINAL DISORDER POSTOPERATIVE [None]
  - VOMITING [None]
  - SCLERITIS [None]
  - CRANIAL NERVE DISORDER [None]
  - CONSTIPATION [None]
